FAERS Safety Report 9709213 (Version 1)
Quarter: 2013Q4

REPORT INFORMATION
  Report Type: Spontaneous
  Country: US (occurrence: US)
  Receive Date: 20131125
  Receipt Date: 20131125
  Transmission Date: 20140711
  Serious: No
  Sender: FDA-Public Use
  Company Number: US-009507513-1311USA010512

PATIENT
  Sex: Female

DRUGS (5)
  1. HYDROCORTISONE [Suspect]
     Indication: HERPES ZOSTER
  2. OXYCODONE [Suspect]
     Indication: HERPES ZOSTER
  3. LYRICA [Suspect]
  4. CAPSAICIN [Suspect]
     Indication: HERPES ZOSTER
  5. TRAMADOL HYDROCHLORIDE [Suspect]
     Indication: HERPES ZOSTER

REACTIONS (1)
  - Drug ineffective [Unknown]
